FAERS Safety Report 13456258 (Version 1)
Quarter: 2017Q2

REPORT INFORMATION
  Report Type: Spontaneous
  Country: US (occurrence: US)
  Receive Date: 20170419
  Receipt Date: 20170419
  Transmission Date: 20170830
  Serious: Yes (Hospitalization)
  Sender: FDA-Public Use
  Company Number: US-PFIZER INC-2017162336

PATIENT
  Age: 1 Year
  Sex: Female

DRUGS (2)
  1. REVATIO [Suspect]
     Active Substance: SILDENAFIL CITRATE
     Dosage: 3 MG, 3X/DAY (EVERY 8 HOURS)
     Route: 048
  2. TRACLEER [Concomitant]
     Active Substance: BOSENTAN
     Dosage: UNK

REACTIONS (2)
  - Drug administered to patient of inappropriate age [Unknown]
  - Viral upper respiratory tract infection [Unknown]
